FAERS Safety Report 10589840 (Version 1)
Quarter: 2014Q4

REPORT INFORMATION
  Report Type: Spontaneous
  Country: US (occurrence: None)
  Receive Date: 20141117
  Receipt Date: 20141117
  Transmission Date: 20150529
  Serious: No
  Sender: FDA-Public Use
  Company Number: None

PATIENT
  Age: 69 Year
  Sex: Male
  Weight: 92.08 kg

DRUGS (1)
  1. MUSE [Suspect]
     Active Substance: ALPROSTADIL
     Dosage: 1 DOSE AS NEEDED URETHRAL SUPPOSITORY
     Dates: start: 20141113

REACTIONS (2)
  - No therapeutic response [None]
  - Penile pain [None]

NARRATIVE: CASE EVENT DATE: 20141113
